FAERS Safety Report 5715698-5 (Version None)
Quarter: 2008Q2

REPORT INFORMATION
  Report Type: 
  Country: None (occurrence: None)
  Receive Date: 20080411
  Receipt Date: 20080411
  Transmission Date: 20081010
  Serious: Yes (Other)
  Sender: FDA-Public Use
  Company Number: 2008SP004596

PATIENT
  Age: 76 Year
  Sex: Female
  Weight: 66.2252 kg

DRUGS (7)
  1. MIRALAX [Suspect]
     Indication: CONSTIPATION
     Dosage: ;UNK;PO
     Route: 048
     Dates: start: 20080223, end: 20080227
  2. ADVAIR HFA [Suspect]
  3. SPRIVIA [Suspect]
  4. LEXAPRO [Concomitant]
  5. GAS-X [Concomitant]
  6. SYNTHROID [Concomitant]
  7. NAPROSYN [Concomitant]

REACTIONS (9)
  - ABDOMINAL DISTENSION [None]
  - CONSTIPATION [None]
  - DYSPNOEA [None]
  - FLATULENCE [None]
  - GASTROINTESTINAL DISORDER [None]
  - OEDEMA MOUTH [None]
  - OESOPHAGEAL DISCOMFORT [None]
  - OESOPHAGEAL OEDEMA [None]
  - SWOLLEN TONGUE [None]
